FAERS Safety Report 10641198 (Version 5)
Quarter: 2015Q1

REPORT INFORMATION
  Report Type: Spontaneous
  Country: US (occurrence: US)
  Receive Date: 20141209
  Receipt Date: 20150226
  Transmission Date: 20150720
  Serious: Yes (Hospitalization, Other)
  Sender: FDA-Public Use
  Company Number: US-GLAXOSMITHKLINE-US2014GSK031756

PATIENT
  Sex: Male

DRUGS (1)
  1. AVANDIA [Suspect]
     Active Substance: ROSIGLITAZONE MALEATE
     Indication: DIABETES MELLITUS
     Dosage: 8 MG, QD
     Route: 048
     Dates: start: 2001, end: 2004

REACTIONS (9)
  - Electrocardiogram abnormal [Unknown]
  - Ischaemia [Unknown]
  - Coronary artery occlusion [Unknown]
  - Sinus bradycardia [Unknown]
  - Ventricular fibrillation [Unknown]
  - Myocardial infarction [Unknown]
  - Aortic valve stenosis [Unknown]
  - Arteriosclerosis coronary artery [Unknown]
  - Atrioventricular block first degree [Unknown]
